FAERS Safety Report 17592077 (Version 2)
Quarter: 2022Q2

REPORT INFORMATION
  Report Type: Spontaneous
  Country: FR (occurrence: FR)
  Receive Date: 20200327
  Receipt Date: 20220406
  Transmission Date: 20220721
  Serious: Yes (Hospitalization)
  Sender: FDA-Public Use
  Company Number: None

PATIENT
  Age: 93 Year
  Sex: Female
  Weight: 60 kg

DRUGS (2)
  1. CUBICIN [Suspect]
     Active Substance: DAPTOMYCIN
     Indication: Staphylococcal sepsis
     Dosage: UNK
     Route: 041
     Dates: start: 20200207, end: 20200219
  2. RIFADIN [Suspect]
     Active Substance: RIFAMPIN
     Indication: Staphylococcal sepsis
     Dosage: 900 MILLIGRAM, QD
     Route: 048
     Dates: start: 20200211, end: 20200217

REACTIONS (5)
  - Thrombocytopenia [Recovering/Resolving]
  - Hyperleukocytosis [Recovering/Resolving]
  - Antibiotic level above therapeutic [Recovered/Resolved]
  - Jaundice [Recovering/Resolving]
  - Hepatocellular injury [Recovering/Resolving]

NARRATIVE: CASE EVENT DATE: 20200217
